APPROVED DRUG PRODUCT: GABAPENTIN
Active Ingredient: GABAPENTIN
Strength: 100MG
Dosage Form/Route: CAPSULE;ORAL
Application: A078428 | Product #001 | TE Code: AB
Applicant: AMNEAL PHARMACEUTICALS NY LLC
Approved: Jul 25, 2007 | RLD: No | RS: No | Type: RX